FAERS Safety Report 16625644 (Version 1)
Quarter: 2019Q3

REPORT INFORMATION
  Report Type: Spontaneous
  Country: US (occurrence: US)
  Receive Date: 20190724
  Receipt Date: 20190724
  Transmission Date: 20191004
  Serious: Yes (Hospitalization)
  Sender: FDA-Public Use
  Company Number: None

PATIENT
  Sex: Male

DRUGS (6)
  1. GLUCOSAMINE, VITAMIN D3, MULTIVITAMIN [Concomitant]
  2. METOPROLOL, LOSARTAN/HCT, ASPIRIN LOW DOSE [Concomitant]
  3. JANUVIA, GEMFIBROZIL, LEVOTHYROXINE [Concomitant]
  4. GABAPENTIN, CETIRIZINE [Concomitant]
  5. ENBREL [Suspect]
     Active Substance: ETANERCEPT
     Indication: PSORIATIC ARTHROPATHY
     Dosage: ?          OTHER FREQUENCY:WEEKLY;?
     Route: 058
     Dates: start: 20171026
  6. DONEPEZIL, METFORMIN, IBUPROFEN [Concomitant]

REACTIONS (1)
  - Spinal fusion surgery [None]
